FAERS Safety Report 5758775-5 (Version None)
Quarter: 2008Q2

REPORT INFORMATION
  Report Type: 
  Country: None (occurrence: None)
  Receive Date: 20080507
  Receipt Date: 20070430
  Transmission Date: 20081010
  Serious: Yes (Other)
  Sender: FDA-Public Use
  Company Number: 233445K07USA

PATIENT
  Age: 13 Year
  Sex: Female

DRUGS (3)
  1. REBIF [Suspect]
     Indication: OFF LABEL USE
     Dosage: SEE IMAGE
     Route: 058
     Dates: start: 20070412, end: 20070427
  2. REBIF [Suspect]
     Indication: OFF LABEL USE
     Dosage: SEE IMAGE
     Route: 058
     Dates: start: 20070517
  3. TYLENOL (COTYLENOL) [Concomitant]

REACTIONS (6)
  - ALANINE AMINOTRANSFERASE INCREASED [None]
  - ASPARTATE AMINOTRANSFERASE INCREASED [None]
  - COUGH [None]
  - EYE DISORDER [None]
  - NASOPHARYNGITIS [None]
  - NAUSEA [None]
